FAERS Safety Report 18066769 (Version 3)
Quarter: 2020Q3

REPORT INFORMATION
  Report Type: Spontaneous
  Country: US (occurrence: US)
  Receive Date: 20200724
  Receipt Date: 20200902
  Transmission Date: 20201103
  Serious: No
  Sender: FDA-Public Use
  Company Number: US-PFIZER INC-2020281367

PATIENT
  Age: 64 Year
  Sex: Female

DRUGS (4)
  1. MEKTOVI [Suspect]
     Active Substance: BINIMETINIB
     Dosage: TAKING 4 DAYS OFF EVERY MONTH
  2. BRAFTOVI [Suspect]
     Active Substance: ENCORAFENIB
     Indication: MALIGNANT MELANOMA
     Dosage: 450 MG, 1X/DAY
     Dates: start: 20200724
  3. MEKTOVI [Suspect]
     Active Substance: BINIMETINIB
     Indication: MALIGNANT MELANOMA
     Dosage: 45 MG, 2X/DAY
     Dates: start: 20200724
  4. BRAFTOVI [Suspect]
     Active Substance: ENCORAFENIB
     Dosage: TAKING 4 DAYS OFF EVERY MONTH

REACTIONS (4)
  - Rash [Recovered/Resolved]
  - Groin pain [Unknown]
  - Fatigue [Recovering/Resolving]
  - Pain in extremity [Recovered/Resolved]
